FAERS Safety Report 10161863 (Version 2)
Quarter: 2014Q2

REPORT INFORMATION
  Report Type: Spontaneous
  Country: US (occurrence: US)
  Receive Date: 20140509
  Receipt Date: 20140606
  Transmission Date: 20141212
  Serious: Yes (Disabling, Other)
  Sender: FDA-Public Use
  Company Number: US-ROCHE-1398417

PATIENT
  Age: 70 Year
  Sex: Male
  Weight: 79 kg

DRUGS (4)
  1. PEGASYS [Suspect]
     Indication: HEPATITIS C
     Route: 058
     Dates: start: 20130722, end: 201310
  2. RIBAVIRIN [Suspect]
     Indication: HEPATITIS C
     Dosage: 600/600
     Route: 048
     Dates: start: 20130722, end: 201310
  3. SOVALDI [Suspect]
     Indication: HEPATITIS C
     Route: 048
  4. VICTRELIS [Suspect]
     Indication: HEPATITIS C
     Route: 048
     Dates: start: 20130722, end: 201310

REACTIONS (4)
  - Respiratory tract congestion [Recovering/Resolving]
  - Dyspnoea [Unknown]
  - Platelet count decreased [Recovered/Resolved]
  - Gingival bleeding [Recovered/Resolved]
